FAERS Safety Report 9414744 (Version 3)
Quarter: 2013Q4

REPORT INFORMATION
  Report Type: Report from Study
  Country: GB (occurrence: GB)
  Receive Date: 20130723
  Receipt Date: 20131221
  Transmission Date: 20140711
  Serious: Yes (Other)
  Sender: FDA-Public Use
  Company Number: GB-ROCHE-1251414

PATIENT
  Age: 51 Year
  Sex: Female
  Weight: 79.2 kg

DRUGS (5)
  1. RANIBIZUMAB [Suspect]
     Indication: RETINAL VEIN OCCLUSION
     Dosage: DATE OF MOST RECENT DOSE PRIOR TO SAE: 13/JUN/2013.
     Route: 050
     Dates: start: 20130516, end: 20130711
  2. BENDROFLUMETHIAZIDE [Concomitant]
     Route: 065
     Dates: start: 20051010
  3. NAPROXEN [Concomitant]
     Route: 065
  4. ZUMENON [Concomitant]
     Route: 065
  5. LANSOPRAZOLE [Concomitant]
     Route: 065

REACTIONS (1)
  - Amnesia [Recovered/Resolved]
